FAERS Safety Report 8325147-9 (Version None)
Quarter: 2012Q2

REPORT INFORMATION
  Report Type: 
  Country: None (occurrence: None)
  Receive Date: 20120501
  Receipt Date: 20120309
  Transmission Date: 20120825
  Serious: No
  Sender: FDA-Public Use
  Company Number: US-ABBOTT-12P-163-0913612-00

PATIENT
  Sex: Female
  Weight: 17.479 kg

DRUGS (7)
  1. PULMOZYME [Concomitant]
     Indication: CYSTIC FIBROSIS
     Dosage: NEBULIZER
  2. CREON [Suspect]
     Indication: CYSTIC FIBROSIS
     Dosage: 3 CAPS WITH MEALS/2 CAPS WITH SNACKS
     Dates: start: 20070101
  3. ALBUTEROL [Concomitant]
     Indication: CYSTIC FIBROSIS
     Dosage: NEBULIZER
  4. CREON [Suspect]
     Dosage: 12,000 USP UNITS OF LIPASE
     Dates: start: 20070101
  5. CREON [Suspect]
     Dosage: 60,000 USP UNITS OF AMYLASE
     Dates: start: 20070101
  6. CREON [Suspect]
     Dosage: 38,000 USP UNITS OF PROTEASE
     Dates: start: 20070101
  7. PULMOZYME [Concomitant]
     Indication: PRODUCT USED FOR UNKNOWN INDICATION

REACTIONS (4)
  - CONSTIPATION [None]
  - FAECES DISCOLOURED [None]
  - RECTAL HAEMORRHAGE [None]
  - FAECES HARD [None]
